FAERS Safety Report 25254854 (Version 1)
Quarter: 2025Q2

REPORT INFORMATION
  Report Type: Spontaneous
  Country: US (occurrence: None)
  Receive Date: 20250430
  Receipt Date: 20250430
  Transmission Date: 20250716
  Serious: Yes (Hospitalization)
  Sender: FDA-CTU
  Company Number: None

PATIENT
  Age: 64 Year
  Sex: Male
  Weight: 76 kg

DRUGS (2)
  1. CARBOPLATIN [Suspect]
     Active Substance: CARBOPLATIN
     Dosage: OTHER QUANTITY : 275.8 MG;?FREQUENCY : MONTHLY;?
     Dates: end: 20210929
  2. TAXOL [Suspect]
     Active Substance: PACLITAXEL
     Dates: end: 20210929

REACTIONS (7)
  - Atrial fibrillation [None]
  - Blood pressure systolic decreased [None]
  - SARS-CoV-2 test positive [None]
  - Therapy interrupted [None]
  - Lung opacity [None]
  - Pneumonia [None]
  - Acute respiratory failure [None]

NARRATIVE: CASE EVENT DATE: 20211116
